FAERS Safety Report 15153433 (Version 2)
Quarter: 2018Q3

REPORT INFORMATION
  Report Type: Spontaneous
  Country: JP (occurrence: JP)
  Receive Date: 20180717
  Receipt Date: 20180822
  Transmission Date: 20181010
  Serious: Yes (Hospitalization)
  Sender: FDA-Public Use
  Company Number: JP-ROCHE-2155850

PATIENT
  Age: 42 Year
  Sex: Female
  Weight: 77 kg

DRUGS (7)
  1. LOXOPROFEN SODIUM HYDRATE [Suspect]
     Active Substance: LOXOPROFEN SODIUM DIHYDRATE
     Indication: PRODUCT USED FOR UNKNOWN INDICATION
     Dosage: DOSAGE IS UNCERTAIN.
     Route: 065
  2. RINDERON V [Suspect]
     Active Substance: BETAMETHASONE VALERATE
     Indication: PRODUCT USED FOR UNKNOWN INDICATION
     Dosage: DOSAGE IS UNCERTAIN.
     Route: 065
  3. DEPAKENE [Suspect]
     Active Substance: VALPROIC ACID
     Indication: PRODUCT USED FOR UNKNOWN INDICATION
     Dosage: DOSAGE IS UNCERTAIN.
     Route: 065
  4. FAMOTIDINE. [Suspect]
     Active Substance: FAMOTIDINE
     Indication: PRODUCT USED FOR UNKNOWN INDICATION
     Dosage: DOSAGE IS UNCERTAIN.
     Route: 065
  5. GLYCEREB [Suspect]
     Active Substance: FRUCTOSE\GLYCERIN
     Indication: PRODUCT USED FOR UNKNOWN INDICATION
     Dosage: DOSAGE IS UNCERTAIN.
     Route: 065
  6. KADCYLA [Suspect]
     Active Substance: ADO-TRASTUZUMAB EMTANSINE
     Indication: BREAST CANCER
     Dosage: DOSAGE IS UNCERTAIN.
     Route: 041
     Dates: start: 20170913, end: 20180522
  7. HORIZON [Suspect]
     Active Substance: DIAZEPAM
     Indication: PRODUCT USED FOR UNKNOWN INDICATION
     Dosage: DOSAGE IS UNCERTAIN. ?SINGLE DOSE
     Route: 065

REACTIONS (4)
  - Diarrhoea [Unknown]
  - Pneumonitis [Recovering/Resolving]
  - Osteonecrosis [Unknown]
  - Oliguria [Unknown]

NARRATIVE: CASE EVENT DATE: 20180612
